FAERS Safety Report 8559096-8 (Version None)
Quarter: 2012Q3

REPORT INFORMATION
  Report Type: 
  Country: None (occurrence: None)
  Receive Date: 20120802
  Receipt Date: 20120723
  Transmission Date: 20120928
  Serious: No
  Sender: FDA-Public Use
  Company Number: US-BIOGENIDEC-2012BI018931

PATIENT
  Sex: Female

DRUGS (2)
  1. MEDICATION (NOS) [Concomitant]
     Indication: GAIT DISTURBANCE
     Route: 048
  2. AVONEX [Suspect]
     Indication: MULTIPLE SCLEROSIS
     Route: 030
     Dates: start: 20060713

REACTIONS (6)
  - GAIT DISTURBANCE [None]
  - MUSCLE SPASMS [None]
  - INSOMNIA [None]
  - FALL [None]
  - PAIN IN EXTREMITY [None]
  - ARTHRALGIA [None]
